FAERS Safety Report 24776694 (Version 1)
Quarter: 2024Q4

REPORT INFORMATION
  Report Type: Spontaneous
  Country: US (occurrence: US)
  Receive Date: 20241226
  Receipt Date: 20241226
  Transmission Date: 20250115
  Serious: No
  Sender: BRISTOL-MYERS SQUIBB COMPANY
  Company Number: US-BRISTOL-MYERS SQUIBB COMPANY-2024-198494

PATIENT
  Age: 53 Year
  Sex: Male

DRUGS (2)
  1. OPDIVO [Suspect]
     Active Substance: NIVOLUMAB
     Indication: Bladder cancer
  2. YERVOY [Suspect]
     Active Substance: IPILIMUMAB
     Indication: Bladder cancer

REACTIONS (5)
  - Vomiting [Unknown]
  - Nausea [Unknown]
  - Influenza like illness [Unknown]
  - Fatigue [Unknown]
  - Injection site swelling [Unknown]
